FAERS Safety Report 6668377-4 (Version None)
Quarter: 2010Q2

REPORT INFORMATION
  Report Type: 
  Country: None (occurrence: None)
  Receive Date: 20100406
  Receipt Date: 20100329
  Transmission Date: 20101027
  Serious: Yes (Other)
  Sender: FDA-Public Use
  Company Number: US-JNJFOC-20091206514

PATIENT
  Sex: Female
  Weight: 115.67 kg

DRUGS (20)
  1. REMICADE [Suspect]
     Indication: RHEUMATOID ARTHRITIS
     Dosage: DOSE= 4 VIALS
     Route: 042
     Dates: start: 20090303, end: 20090929
  2. REMICADE [Suspect]
     Dosage: DOSE= 4 VIALS
     Route: 042
     Dates: start: 20090303, end: 20090929
  3. REMICADE [Suspect]
     Dosage: DOSE= 4 VIALS
     Route: 042
     Dates: start: 20090303, end: 20090929
  4. REMICADE [Suspect]
     Dosage: DOSE= 4 VIALS
     Route: 042
     Dates: start: 20090303, end: 20090929
  5. REMICADE [Suspect]
     Dosage: DOSE= 4 VIALS
     Route: 042
     Dates: start: 20090303, end: 20090929
  6. REMICADE [Suspect]
     Dosage: DOSE= 4 VIALS
     Route: 042
     Dates: start: 20090303, end: 20090929
  7. METHOTREXATE [Concomitant]
     Indication: RHEUMATOID ARTHRITIS
     Route: 058
  8. FOLIC ACID [Concomitant]
     Route: 048
  9. CALCIUM WITH VITAMIN D [Concomitant]
     Route: 048
  10. BABY ASPIRIN [Concomitant]
  11. SPIRIVA [Concomitant]
     Route: 055
  12. SIMVASTATIN [Concomitant]
     Route: 048
  13. PROPRANOLOL [Concomitant]
     Route: 048
  14. LUTEIN [Concomitant]
  15. ACIDOPHILUS [Concomitant]
  16. MULTI-VITAMINS [Concomitant]
     Route: 048
  17. FISH OIL [Concomitant]
     Route: 048
  18. NITROGLYCERIN [Concomitant]
  19. ALBUTEROL [Concomitant]
  20. TYLENOL-500 [Concomitant]

REACTIONS (3)
  - BRONCHIOLOALVEOLAR CARCINOMA [None]
  - CARCINOMA IN SITU OF TRACHEA [None]
  - LUNG NEOPLASM [None]
